FAERS Safety Report 15358370 (Version 1)
Quarter: 2018Q3

REPORT INFORMATION
  Report Type: Spontaneous
  Country: US (occurrence: US)
  Receive Date: 20180906
  Receipt Date: 20180906
  Transmission Date: 20181010
  Serious: No
  Sender: FDA-Public Use
  Company Number: US-PERRIGO-18US001173

PATIENT
  Age: 52 Year
  Sex: Female
  Weight: 72.56 kg

DRUGS (2)
  1. EVAMIST [Suspect]
     Active Substance: ESTRADIOL
     Indication: HORMONE REPLACEMENT THERAPY
     Dosage: 3.06 MG, QD
     Route: 062
     Dates: start: 2014, end: 20180107
  2. EVAMIST [Suspect]
     Active Substance: ESTRADIOL
     Dosage: UNK, QD
     Route: 062
     Dates: start: 20180108, end: 201801

REACTIONS (2)
  - Wrong technique in product usage process [Recovered/Resolved]
  - Underdose [Recovered/Resolved]

NARRATIVE: CASE EVENT DATE: 201801
